FAERS Safety Report 9356605 (Version 1)
Quarter: 2013Q2

REPORT INFORMATION
  Report Type: Spontaneous
  Country: JP (occurrence: None)
  Receive Date: 20130617
  Receipt Date: 20130617
  Transmission Date: 20140414
  Serious: Yes (Hospitalization)
  Sender: FDA-Public Use
  Company Number: IPC201306-000220

PATIENT
  Age: 53 Year
  Sex: Male

DRUGS (6)
  1. FUROSEMIDE [Suspect]
     Indication: DIURETIC THERAPY
     Dates: start: 201008
  2. TORASEMIDE [Suspect]
     Indication: DIURETIC THERAPY
     Dosage: 4 MG /DAY
     Dates: start: 201111
  3. TRICHLORMETHIAZIDE [Suspect]
     Indication: DIURETIC THERAPY
     Dates: start: 201008
  4. CARVEDILOL [Suspect]
     Dates: start: 201008
  5. ENALAPRIL [Suspect]
     Dates: start: 201008
  6. SPIRONOLACTONE [Suspect]
     Dates: start: 201008

REACTIONS (2)
  - Renal impairment [None]
  - Hyponatraemia [None]
